FAERS Safety Report 4540718-3 (Version None)
Quarter: 2004Q4

REPORT INFORMATION
  Report Type: 
  Country: None (occurrence: None)
  Receive Date: 20041229
  Receipt Date: 20041124
  Transmission Date: 20050328
  Serious: Yes (Other)
  Sender: FDA-Public Use
  Company Number: 200419101US

PATIENT
  Sex: Female
  Weight: 48.6 kg

DRUGS (4)
  1. KETEK [Suspect]
     Indication: SINUSITIS
     Dosage: DOSE: NOT PROVIDED
     Route: 048
     Dates: start: 20041001, end: 20041101
  2. SYNTHROID [Concomitant]
  3. PROMETRIUM [Concomitant]
     Dosage: DOSE: NOT PROVIDED
  4. NUVELLE [Concomitant]
     Dosage: DOSE: NOT PROVIDED

REACTIONS (4)
  - DEMYELINATION [None]
  - HYPOAESTHESIA [None]
  - MYELITIS [None]
  - PARAESTHESIA [None]
